FAERS Safety Report 20961130 (Version 1)
Quarter: 2022Q2

REPORT INFORMATION
  Report Type: Spontaneous
  Country: US (occurrence: US)
  Receive Date: 20220615
  Receipt Date: 20220615
  Transmission Date: 20220720
  Serious: Yes (Other)
  Sender: FDA-Public Use
  Company Number: US-009507513-2206USA003841

PATIENT
  Age: 7 Year

DRUGS (14)
  1. TEMODAR [Suspect]
     Active Substance: TEMOZOLOMIDE
     Indication: Neuroblastoma
     Dosage: UNK
     Route: 048
  2. ETOPOSIDE [Concomitant]
     Active Substance: ETOPOSIDE
  3. IFOSFAMIDE [Concomitant]
     Active Substance: IFOSFAMIDE
  4. CARBOPLATIN [Concomitant]
     Active Substance: CARBOPLATIN
  5. CISPLATIN [Concomitant]
     Active Substance: CISPLATIN
  6. IRINOTECAN [Concomitant]
     Active Substance: IRINOTECAN
  7. DECITABINE [Concomitant]
     Active Substance: DECITABINE
  8. CYCLOPHOSPHAMIDE [Concomitant]
     Active Substance: CYCLOPHOSPHAMIDE
  9. TOPOTECAN [Concomitant]
     Active Substance: TOPOTECAN HYDROCHLORIDE
  10. VORINOSTAT [Concomitant]
     Active Substance: VORINOSTAT
  11. PERIFOSINE [Concomitant]
     Active Substance: PERIFOSINE
  12. VINCRISTINE [Concomitant]
     Active Substance: VINCRISTINE
  13. DOXORUBICIN [Concomitant]
     Active Substance: DOXORUBICIN
  14. BEVACIZUMAB [Concomitant]
     Active Substance: BEVACIZUMAB

REACTIONS (2)
  - Myelodysplastic syndrome [Unknown]
  - Product use in unapproved indication [Unknown]
